FAERS Safety Report 5432318-8 (Version None)
Quarter: 2007Q3

REPORT INFORMATION
  Report Type: 
  Country: None (occurrence: None)
  Receive Date: 20070831
  Receipt Date: 20070822
  Transmission Date: 20080115
  Serious: Yes (Hospitalization)
  Sender: FDA-Public Use
  Company Number: US-JNJFOC-20040700243

PATIENT
  Sex: Female

DRUGS (8)
  1. INFLIXIMAB [Suspect]
     Route: 042
  2. INFLIXIMAB [Suspect]
     Indication: RHEUMATOID ARTHRITIS
     Route: 042
  3. SYNTHROID [Concomitant]
  4. PREDNISONE [Concomitant]
  5. VIOXX [Concomitant]
  6. CALCIUM [Concomitant]
  7. ALEVE [Concomitant]
  8. MULTI-VITAMIN [Concomitant]

REACTIONS (4)
  - ANAEMIA [None]
  - ENDOMETRIAL SARCOMA [None]
  - PLEURAL EFFUSION [None]
  - PYREXIA [None]
